FAERS Safety Report 18137038 (Version 1)
Quarter: 2020Q3

REPORT INFORMATION
  Report Type: Spontaneous
  Country: PL (occurrence: PL)
  Receive Date: 20200812
  Receipt Date: 20200812
  Transmission Date: 20201103
  Serious: Yes (Other)
  Sender: FDA-Public Use
  Company Number: PL-TEVA-2020-PL-1812178

PATIENT
  Age: 50 Year
  Sex: Female

DRUGS (1)
  1. EBILFUMIN 75 MG, G?LULE [Suspect]
     Active Substance: OSELTAMIVIR PHOSPHATE
     Indication: INFLUENZA
     Dosage: DOSE: 1 TABLET
     Route: 048
     Dates: start: 20200205, end: 20200206

REACTIONS (6)
  - Abdominal pain [Recovering/Resolving]
  - Conjunctivitis [Recovering/Resolving]
  - Headache [Recovering/Resolving]
  - Vomiting [Recovering/Resolving]
  - Deafness [Recovering/Resolving]
  - Ear infection [Recovering/Resolving]
